FAERS Safety Report 8770362 (Version 1)
Quarter: 2012Q4

REPORT INFORMATION
  Report Type: 
  Country: US (occurrence: US)
  Receive Date: 20120903
  Receipt Date: 20120903
  Transmission Date: 20130627
  Serious: Yes (Other)
  Sender: FDA-Public Use
  Company Number: US-ELI_LILLY_AND_COMPANY-US201208008731

PATIENT
  Sex: Male

DRUGS (1)
  1. CYMBALTA [Suspect]

REACTIONS (2)
  - Dialysis [Unknown]
  - Drug ineffective [Unknown]
